FAERS Safety Report 7441974-4 (Version None)
Quarter: 2011Q2

REPORT INFORMATION
  Report Type: 
  Country: None (occurrence: None)
  Receive Date: 20110428
  Receipt Date: 20101018
  Transmission Date: 20111010
  Serious: No
  Sender: FDA-Public Use
  Company Number: US-ASTRAZENECA-2010SE49185

PATIENT
  Age: 22331 Day
  Sex: Female

DRUGS (3)
  1. ZOMIG [Suspect]
     Indication: HEADACHE
     Route: 045
     Dates: start: 20040101
  2. ZOMIG [Suspect]
     Indication: MIGRAINE
     Route: 045
     Dates: start: 20040101
  3. NEURONTIN [Concomitant]

REACTIONS (2)
  - MIGRAINE [None]
  - PALPITATIONS [None]
